FAERS Safety Report 25672842 (Version 1)
Quarter: 2025Q3

REPORT INFORMATION
  Report Type: Spontaneous
  Country: US (occurrence: US)
  Receive Date: 20250812
  Receipt Date: 20250812
  Transmission Date: 20251020
  Serious: No
  Sender: ANI
  Company Number: US-ANIPHARMA-2025-US-004198

PATIENT
  Age: 63 Year
  Sex: Male
  Weight: 86.18 kg

DRUGS (21)
  1. CORTICOTROPIN [Suspect]
     Active Substance: CORTICOTROPIN
     Indication: Rheumatoid arthritis
     Route: 058
     Dates: start: 20240220
  2. PROPRANOLOL HYDROCHLORIDE [Concomitant]
     Active Substance: PROPRANOLOL HYDROCHLORIDE
  3. TOPIRAMATE [Concomitant]
     Active Substance: TOPIRAMATE
  4. LEVETIRACETAM [Concomitant]
     Active Substance: LEVETIRACETAM
  5. LEXAPRO [Concomitant]
     Active Substance: ESCITALOPRAM OXALATE
  6. XARELTO [Concomitant]
     Active Substance: RIVAROXABAN
  7. OXYCODONE HYDROCHLORIDE [Concomitant]
     Active Substance: OXYCODONE HYDROCHLORIDE
  8. AIMOVIG [Concomitant]
     Active Substance: ERENUMAB-AOOE
  9. PRIMIDONE [Concomitant]
     Active Substance: PRIMIDONE
  10. METHOTREXATE SODIUM [Concomitant]
     Active Substance: METHOTREXATE SODIUM
  11. CIALIS [Concomitant]
     Active Substance: TADALAFIL
  12. MECLIZINE [Concomitant]
     Active Substance: MECLIZINE HYDROCHLORIDE
  13. IMITREX [Concomitant]
     Active Substance: SUMATRIPTAN SUCCINATE
  14. BACLOFEN [Concomitant]
     Active Substance: BACLOFEN
  15. VITAMIN C [Concomitant]
     Active Substance: ASCORBIC ACID
  16. POTASSIUM [Concomitant]
     Active Substance: POTASSIUM
  17. RITUXAN [Concomitant]
     Active Substance: RITUXIMAB
  18. BENADRYL [Concomitant]
     Active Substance: DIPHENHYDRAMINE HYDROCHLORIDE
  19. SINGULAIR [Concomitant]
     Active Substance: MONTELUKAST SODIUM
  20. CALCIUM [Concomitant]
     Active Substance: CALCIUM
  21. NEXIUM [Concomitant]
     Active Substance: ESOMEPRAZOLE MAGNESIUM

REACTIONS (3)
  - Inappropriate schedule of product administration [Unknown]
  - Feeling abnormal [Unknown]
  - Contraindicated product administered [Not Recovered/Not Resolved]

NARRATIVE: CASE EVENT DATE: 20240201
